FAERS Safety Report 6381290-5 (Version None)
Quarter: 2009Q3

REPORT INFORMATION
  Report Type: 
  Country: None (occurrence: None)
  Receive Date: 20090929
  Receipt Date: 20090918
  Transmission Date: 20100115
  Serious: Yes (Hospitalization)
  Sender: FDA-Public Use
  Company Number: GB-AMGEN-US364901

PATIENT
  Age: 50 Year
  Sex: Female

DRUGS (2)
  1. ENBREL [Suspect]
     Indication: DRUG USE FOR UNKNOWN INDICATION
     Dates: start: 20090827, end: 20090907
  2. PREDNISOLONE [Concomitant]
     Dosage: UNKNOWN

REACTIONS (3)
  - CHEST PAIN [None]
  - DYSPNOEA [None]
  - SWOLLEN TONGUE [None]
